FAERS Safety Report 16624968 (Version 2)
Quarter: 2019Q3

REPORT INFORMATION
  Report Type: Spontaneous
  Country: JP (occurrence: JP)
  Receive Date: 20190724
  Receipt Date: 20190729
  Transmission Date: 20191004
  Serious: No
  Sender: FDA-Public Use
  Company Number: JP-PFIZER INC-2019312191

PATIENT
  Age: 86 Year
  Sex: Male

DRUGS (2)
  1. ESTRACYT [Suspect]
     Active Substance: ESTRAMUSTINE
     Dosage: 626.8 MG, DAILY
     Route: 048
  2. CASODEX [Concomitant]
     Active Substance: BICALUTAMIDE
     Dosage: UNK

REACTIONS (2)
  - Infection [Recovering/Resolving]
  - White blood cell count increased [Recovering/Resolving]
